FAERS Safety Report 23702195 (Version 1)
Quarter: 2024Q2

REPORT INFORMATION
  Report Type: Spontaneous
  Country: US (occurrence: None)
  Receive Date: 20240402
  Receipt Date: 20240402
  Transmission Date: 20240716
  Serious: No
  Sender: FDA-Public Use
  Company Number: None

PATIENT
  Age: 69 Year
  Sex: Female

DRUGS (1)
  1. SKYRIZI [Suspect]
     Active Substance: RISANKIZUMAB-RZAA
     Indication: Crohn^s disease
     Dosage: INJECT 300MCG SUBCUTANEOUSLY USING ON BODY INJECTOR EVERY 8 WEEKS  AS DIRECTED?
     Route: 058
     Dates: start: 202402

REACTIONS (1)
  - Frequent bowel movements [None]
